FAERS Safety Report 8539401 (Version 2)
Quarter: 2019Q1

REPORT INFORMATION
  Report Type: Spontaneous
  Country: US (occurrence: US)
  Receive Date: 20120501
  Receipt Date: 20190306
  Transmission Date: 20190418
  Serious: No
  Sender: FDA-Public Use
  Company Number: US-SANOFI-AVENTIS-2011SA084487

PATIENT
  Age: 67 Year
  Sex: Male

DRUGS (3)
  1. APIDRA [Suspect]
     Active Substance: INSULIN GLULISINE
     Indication: TYPE 2 DIABETES MELLITUS
     Dosage: 180 DF,QD
     Route: 058
     Dates: start: 201111
  2. NOVOLOG [Suspect]
     Active Substance: INSULIN ASPART
     Dosage: UNK UNK, UNK
  3. HUMALOG [Suspect]
     Active Substance: INSULIN LISPRO
     Dosage: UNK UNK, UNK

REACTIONS (3)
  - Blood creatinine increased [Not Recovered/Not Resolved]
  - Hypoacusis [Unknown]
  - Injection site swelling [Unknown]

NARRATIVE: CASE EVENT DATE: 2011
